FAERS Safety Report 14001225 (Version 4)
Quarter: 2017Q4

REPORT INFORMATION
  Report Type: Spontaneous
  Country: FR (occurrence: FR)
  Receive Date: 20170922
  Receipt Date: 20171120
  Transmission Date: 20180321
  Serious: Yes (Disabling, Other)
  Sender: FDA-Public Use
  Company Number: FR-MERCK KGAA-2027365

PATIENT
  Age: 60 Year
  Sex: Female

DRUGS (6)
  1. LEVOTHYROX [Suspect]
     Active Substance: LEVOTHYROXINE
     Dates: start: 201709
  2. NOVOTHYROX [Suspect]
     Active Substance: LEVOTHYROXINE SODIUM
     Dates: start: 201703, end: 201709
  3. NOVOTHYROX [Suspect]
     Active Substance: LEVOTHYROXINE SODIUM
     Indication: THYROIDECTOMY
     Dates: start: 201703, end: 201709
  4. LEVOTHYROX [Suspect]
     Active Substance: LEVOTHYROXINE
     Dates: start: 201709
  5. LEVOTHYROX [Suspect]
     Active Substance: LEVOTHYROXINE
     Dates: start: 1990
  6. NOVOTHYROX [Suspect]
     Active Substance: LEVOTHYROXINE SODIUM
     Dates: start: 201703, end: 201709

REACTIONS (21)
  - Gait inability [Recovered/Resolved]
  - Migraine [Recovering/Resolving]
  - Nausea [Recovering/Resolving]
  - Anaemia [None]
  - Asthenia [Recovering/Resolving]
  - Alopecia [Recovering/Resolving]
  - Feeling abnormal [None]
  - Pain in extremity [None]
  - Amnesia [None]
  - Hyperhidrosis [Recovering/Resolving]
  - Blood pressure abnormal [None]
  - Bronchitis chronic [None]
  - Weight decreased [None]
  - Dehydration [None]
  - Suicidal ideation [Recovering/Resolving]
  - Fatigue [Recovering/Resolving]
  - Vomiting [Recovering/Resolving]
  - Drug intolerance [Recovering/Resolving]
  - Urinary retention [Recovering/Resolving]
  - Decreased appetite [Recovering/Resolving]
  - Blood thyroid stimulating hormone abnormal [None]

NARRATIVE: CASE EVENT DATE: 2017
